FAERS Safety Report 11359072 (Version 1)
Quarter: 2015Q3

REPORT INFORMATION
  Report Type: Spontaneous
  Country: US (occurrence: GB)
  Receive Date: 20150807
  Receipt Date: 20150807
  Transmission Date: 20151125
  Serious: Yes (Other)
  Sender: FDA-Public Use
  Company Number: GB-FRI-1000078826

PATIENT
  Age: 38 Year
  Sex: Female

DRUGS (1)
  1. LINACLOTIDE [Suspect]
     Active Substance: LINACLOTIDE
     Indication: CONSTIPATION
     Dosage: 290 MCG
     Route: 048
     Dates: start: 20150706, end: 20150708

REACTIONS (4)
  - Off label use [Recovered/Resolved]
  - Drug ineffective [Unknown]
  - Abdominal distension [Unknown]
  - Discomfort [Unknown]

NARRATIVE: CASE EVENT DATE: 20150706
